FAERS Safety Report 21776687 (Version 4)
Quarter: 2024Q2

REPORT INFORMATION
  Report Type: Report from Study
  Country: US (occurrence: US)
  Receive Date: 20221226
  Receipt Date: 20240614
  Transmission Date: 20240716
  Serious: Yes (Other)
  Sender: FDA-Public Use
  Company Number: US-ABBVIE-4246742

PATIENT
  Age: 58 Year
  Sex: Female

DRUGS (2)
  1. HUMIRA [Suspect]
     Active Substance: ADALIMUMAB
     Indication: Crohn^s disease
     Dosage: FORM STRENGTH: 40 MILLIGRAM,  CITRATE FREE?DRUG END DATE MAY 2022
     Route: 058
     Dates: start: 20220507
  2. HUMIRA [Suspect]
     Active Substance: ADALIMUMAB
     Dosage: FORM STRENGTH: 40 MILLIGRAM,  CITRATE FREE
     Route: 058
     Dates: start: 202205

REACTIONS (7)
  - Renal impairment [Recovered/Resolved]
  - Sinusitis [Recovering/Resolving]
  - Nasopharyngitis [Not Recovered/Not Resolved]
  - Gastrointestinal disorder [Unknown]
  - Type 2 diabetes mellitus [Not Recovered/Not Resolved]
  - Pancreatic disorder [Unknown]
  - Renal impairment [Unknown]

NARRATIVE: CASE EVENT DATE: 20221214
